FAERS Safety Report 9563394 (Version 2)
Quarter: 2013Q4

REPORT INFORMATION
  Report Type: Report from Study
  Country: GB (occurrence: GB)
  Receive Date: 20130927
  Receipt Date: 20131022
  Transmission Date: 20140711
  Serious: Yes (Hospitalization)
  Sender: FDA-Public Use
  Company Number: GB-ROCHE-1281726

PATIENT
  Age: 34 Year
  Sex: Female

DRUGS (4)
  1. OMALIZUMAB [Suspect]
     Indication: ASTHMA
     Route: 065
     Dates: start: 20121122
  2. SALMETEROL [Concomitant]
  3. MONTELUKAST [Concomitant]
  4. SALBUTAMOL [Concomitant]

REACTIONS (1)
  - Gastrointestinal disorder [Recovered/Resolved]
